FAERS Safety Report 4448253-8 (Version None)
Quarter: 2004Q3

REPORT INFORMATION
  Report Type: 
  Country: None (occurrence: None)
  Receive Date: 20040910
  Receipt Date: 20040825
  Transmission Date: 20050211
  Serious: Yes (Other)
  Sender: FDA-Public Use
  Company Number: 200410709BCA

PATIENT
  Sex: Female

DRUGS (49)
  1. PLASBUMIN-25 [Suspect]
     Dosage: SEE IMAGE
     Route: 042
     Dates: start: 19890317
  2. PLASBUMIN-25 [Suspect]
     Dosage: SEE IMAGE
     Route: 042
     Dates: start: 19890320
  3. PLASBUMIN-25 [Suspect]
  4. ALBUMINAR-5 [Suspect]
     Dosage: 5 U, INTRAVENOUS
     Route: 042
     Dates: start: 19890316, end: 19890318
  5. FRESH FROZEN PLASMA [Suspect]
     Dosage: INTRAVENOUS
     Route: 042
     Dates: start: 19890317
  6. FRESH FROZEN PLASMA [Suspect]
     Dosage: INTRAVENOUS
     Route: 042
     Dates: start: 19890317
  7. FRESH FROZEN PLASMA [Suspect]
     Dosage: INTRAVENOUS
     Route: 042
     Dates: start: 19890317
  8. FRESH FROZEN PLASMA [Suspect]
     Dosage: INTRAVENOUS
     Route: 042
     Dates: start: 19890317
  9. FRESH FROZEN PLASMA [Suspect]
  10. FRESH FROZEN PLASMA [Suspect]
  11. FRESH FROZEN PLASMA [Suspect]
  12. PACKED CELLS (BLOOD CELLS, PACKED HUMAN) [Suspect]
     Dosage: INTRAVENOUS
     Route: 042
     Dates: start: 19890316
  13. PACKED CELLS (BLOOD CELLS, PACKED HUMAN) [Suspect]
     Dosage: INTRAVENOUS
     Route: 042
     Dates: start: 19890316
  14. PACKED CELLS (BLOOD CELLS, PACKED HUMAN) [Suspect]
     Dosage: INTRAVENOUS
     Route: 042
     Dates: start: 19890316
  15. PACKED CELLS (BLOOD CELLS, PACKED HUMAN) [Suspect]
     Dosage: INTRAVENOUS
     Route: 042
     Dates: start: 19890316
  16. PACKED CELLS (BLOOD CELLS, PACKED HUMAN) [Suspect]
     Dosage: INTRAVENOUS
     Route: 042
     Dates: start: 19890317
  17. PACKED CELLS (BLOOD CELLS, PACKED HUMAN) [Suspect]
     Dosage: INTRAVENOUS
     Route: 042
     Dates: start: 19890317
  18. PACKED CELLS (BLOOD CELLS, PACKED HUMAN) [Suspect]
     Dosage: INTRAVENOUS
     Route: 042
     Dates: start: 19890319
  19. PACKED CELLS (BLOOD CELLS, PACKED HUMAN) [Suspect]
     Dosage: INTRAVENOUS
     Route: 042
     Dates: start: 19890319
  20. PACKED CELLS (BLOOD CELLS, PACKED HUMAN) [Suspect]
     Dosage: INTRAVENOUS
     Route: 042
     Dates: start: 19890328
  21. PACKED CELLS (BLOOD CELLS, PACKED HUMAN) [Suspect]
     Dosage: INTRAVENOUS
     Route: 042
     Dates: start: 19890328
  22. PACKED CELLS (BLOOD CELLS, PACKED HUMAN) [Suspect]
     Dosage: INTRAVENOUS
     Route: 042
     Dates: start: 19890527
  23. PACKED CELLS (BLOOD CELLS, PACKED HUMAN) [Suspect]
     Dosage: INTRAVENOUS
     Route: 042
     Dates: start: 19890528
  24. PACKED CELLS (BLOOD CELLS, PACKED HUMAN) [Suspect]
     Dosage: INTRAVENOUS
     Route: 042
     Dates: start: 19961005
  25. PACKED CELLS (BLOOD CELLS, PACKED HUMAN) [Suspect]
     Dosage: INTRAVENOUS
     Route: 042
     Dates: start: 19961005
  26. PACKED CELLS (BLOOD CELLS, PACKED HUMAN) [Suspect]
  27. PACKED CELLS (BLOOD CELLS, PACKED HUMAN) [Suspect]
  28. PACKED CELLS (BLOOD CELLS, PACKED HUMAN) [Suspect]
  29. PACKED CELLS (BLOOD CELLS, PACKED HUMAN) [Suspect]
  30. PACKED CELLS (BLOOD CELLS, PACKED HUMAN) [Suspect]
  31. PACKED CELLS (BLOOD CELLS, PACKED HUMAN) [Suspect]
  32. PACKED CELLS (BLOOD CELLS, PACKED HUMAN) [Suspect]
  33. PACKED CELLS (BLOOD CELLS, PACKED HUMAN) [Suspect]
  34. PACKED CELLS (BLOOD CELLS, PACKED HUMAN) [Suspect]
  35. PACKED CELLS (BLOOD CELLS, PACKED HUMAN) [Suspect]
  36. PACKED CELLS (BLOOD CELLS, PACKED HUMAN) [Suspect]
  37. PACKED CELLS (BLOOD CELLS, PACKED HUMAN) [Suspect]
  38. PACKED CELLS (BLOOD CELLS, PACKED HUMAN) [Suspect]
  39. PLATELET (PLATELETS, HUMAN BLOOD) [Suspect]
     Dosage: INTRAVENOUS
     Route: 042
     Dates: start: 19890318
  40. PLATELET (PLATELETS, HUMAN BLOOD) [Suspect]
     Dosage: INTRAVENOUS
     Route: 042
     Dates: start: 19890318
  41. PLATELET (PLATELETS, HUMAN BLOOD) [Suspect]
     Dosage: INTRAVENOUS
     Route: 042
     Dates: start: 19890318
  42. PLATELET (PLATELETS, HUMAN BLOOD) [Suspect]
     Dosage: INTRAVENOUS
     Route: 042
     Dates: start: 19890318
  43. PLATELET (PLATELETS, HUMAN BLOOD) [Suspect]
     Dosage: INTRAVENOUS
     Route: 042
     Dates: start: 19890318
  44. PLATELET (PLATELETS, HUMAN BLOOD) [Suspect]
     Dosage: INTRAVENOUS
     Route: 042
     Dates: start: 19890318
  45. PLATELET (PLATELETS, HUMAN BLOOD) [Suspect]
  46. PLATELET (PLATELETS, HUMAN BLOOD) [Suspect]
  47. PLATELET (PLATELETS, HUMAN BLOOD) [Suspect]
  48. PLATELET (PLATELETS, HUMAN BLOOD) [Suspect]
  49. PLATELET (PLATELETS, HUMAN BLOOD) [Suspect]

REACTIONS (1)
  - HEPATITIS C POSITIVE [None]
